FAERS Safety Report 13442249 (Version 1)
Quarter: 2017Q2

REPORT INFORMATION
  Report Type: Spontaneous
  Country: US (occurrence: US)
  Receive Date: 20170413
  Receipt Date: 20170413
  Transmission Date: 20170830
  Serious: Yes (Life-Threatening, Other)
  Sender: FDA-Public Use
  Company Number: None

PATIENT

DRUGS (1)
  1. MASITINIB [Suspect]
     Active Substance: MASITINIB

REACTIONS (16)
  - Rash [None]
  - Hepatotoxicity [None]
  - Face oedema [None]
  - Eyelid oedema [None]
  - Pyrexia [None]
  - Dehydration [None]
  - Thrombosis [None]
  - Neutropenia [None]
  - Thrombocytopenia [None]
  - Hepatitis acute [None]
  - Drug-induced liver injury [None]
  - Vomiting [None]
  - Anaemia [None]
  - Hypokalaemia [None]
  - Nausea [None]
  - Lymphopenia [None]

NARRATIVE: CASE EVENT DATE: 20150928
